FAERS Safety Report 7927722-X (Version None)
Quarter: 2011Q4

REPORT INFORMATION
  Report Type: 
  Country: None (occurrence: None)
  Receive Date: 20111118
  Receipt Date: 20111115
  Transmission Date: 20120403
  Serious: Yes (Other)
  Sender: FDA-Public Use
  Company Number: IE-VERTEX PHARMACEUTICALS INC.-AE-2011-002706

PATIENT
  Sex: Female
  Weight: 85 kg

DRUGS (6)
  1. PEGASYS [Concomitant]
     Indication: HEPATITIS C
     Route: 058
  2. NEORECORMON [Concomitant]
     Route: 058
     Dates: start: 20110921
  3. RIBAVIRIN [Concomitant]
     Indication: HEPATITIS C
     Route: 048
     Dates: start: 20110825
  4. EMULSIDERM [Concomitant]
     Route: 061
     Dates: start: 20110913
  5. VX-950 [Suspect]
     Indication: HEPATITIS C
     Route: 048
     Dates: start: 20110825
  6. MOTILIUM [Concomitant]
     Route: 048
     Dates: start: 20110913

REACTIONS (5)
  - RASH GENERALISED [None]
  - ACROCHORDON [None]
  - CHILLS [None]
  - ANAEMIA [None]
  - FEELING HOT [None]
